FAERS Safety Report 7757933-8 (Version None)
Quarter: 2011Q3

REPORT INFORMATION
  Report Type: 
  Country: None (occurrence: None)
  Receive Date: 20110919
  Receipt Date: 20110908
  Transmission Date: 20111222
  Serious: Yes (Hospitalization)
  Sender: FDA-Public Use
  Company Number: AR-AMGEN-ARGSP2011046850

PATIENT
  Age: 53 Year
  Sex: Male

DRUGS (5)
  1. PREGABALIN [Concomitant]
     Dosage: 75 MG, 1X/DAY
  2. INDOMETACIN [Concomitant]
     Dosage: 75 MG, 2X/DAY
  3. PREDNISONE [Concomitant]
     Dosage: 8 MG, UNK
  4. TRAMADOL HCL [Concomitant]
     Dosage: 50 MG, 2X/DAY
  5. ENBREL [Suspect]
     Indication: ANKYLOSING SPONDYLITIS
     Dosage: 50 MG, WEEKLY
     Dates: start: 20110801

REACTIONS (5)
  - ENDOCARDITIS [None]
  - LEUKOCYTOSIS [None]
  - PYREXIA [None]
  - SKIN INFECTION [None]
  - SEPSIS [None]
